FAERS Safety Report 5955286-9 (Version None)
Quarter: 2008Q4

REPORT INFORMATION
  Report Type: 
  Country: None (occurrence: None)
  Receive Date: 20081117
  Receipt Date: 20081112
  Transmission Date: 20090506
  Serious: Yes (Hospitalization)
  Sender: FDA-Public Use
  Company Number: US-GENENTECH-271428

PATIENT
  Sex: Male
  Weight: 71.655 kg

DRUGS (7)
  1. BEVACIZUMAB [Suspect]
     Indication: HEAD AND NECK CANCER
     Dosage: UNK
  2. BEVACIZUMAB [Suspect]
     Dosage: 15 MG/KG, UNK
     Dates: start: 20080911
  3. ERLOTINIB [Suspect]
     Indication: HEAD AND NECK CANCER
     Dosage: 150 MG, QD
     Route: 048
     Dates: start: 20080911
  4. TAXOL [Suspect]
     Indication: HEAD AND NECK CANCER
     Dosage: UNK
  5. TAXOL [Suspect]
     Dosage: 50 MG/M2, X6
     Dates: start: 20080911
  6. CARBOPLATIN [Suspect]
     Indication: HEAD AND NECK CANCER
     Dosage: UNK
  7. FLUOROURACIL [Suspect]
     Indication: HEAD AND NECK CANCER
     Dosage: UNK
     Route: 042

REACTIONS (1)
  - PNEUMATOSIS INTESTINALIS [None]
